FAERS Safety Report 4698477-X (Version None)
Quarter: 2005Q2

REPORT INFORMATION
  Report Type: 
  Country: None (occurrence: None)
  Receive Date: 20050621
  Receipt Date: 20050606
  Transmission Date: 20051028
  Serious: Yes (Hospitalization, Other)
  Sender: FDA-Public Use
  Company Number: JP_050606748

PATIENT
  Age: 7 Year
  Sex: Male
  Weight: 29 kg

DRUGS (14)
  1. ONCOVIN [Suspect]
     Indication: ACUTE LYMPHOCYTIC LEUKAEMIA
     Dosage: 1.5 MG OTHER
     Route: 050
     Dates: start: 20050531, end: 20050531
  2. PINORUBICIN (PIRARUBICIN) [Concomitant]
  3. DECADRON /CAN/ (DEXAMETHASONE /00016001/) [Concomitant]
  4. PREDONINE (PREDNISOLONE /00016201/) [Concomitant]
  5. ALLOPURINOL [Concomitant]
  6. POLYMYXIN B SULFATE [Concomitant]
  7. FUNGIZONE [Concomitant]
  8. MEROPEN (MEROPENEM) [Concomitant]
  9. DIFLUCAN [Concomitant]
  10. NEUQUINON (UBIDECARENONE) [Concomitant]
  11. KYTRIL [Concomitant]
  12. METHOTREXATE [Concomitant]
  13. HYDROCORTONE (HYDROCORTISONE /00028601/) [Concomitant]
  14. CYTARABINE [Concomitant]

REACTIONS (6)
  - ABDOMINAL PAIN UPPER [None]
  - COAGULOPATHY [None]
  - DISSEMINATED INTRAVASCULAR COAGULATION [None]
  - PANCREATITIS ACUTE [None]
  - PLATELET COUNT DECREASED [None]
  - TUMOUR LYSIS SYNDROME [None]
